FAERS Safety Report 6261886-1 (Version None)
Quarter: 2009Q3

REPORT INFORMATION
  Report Type: 
  Country: None (occurrence: None)
  Receive Date: 20090709
  Receipt Date: 20090630
  Transmission Date: 20100115
  Serious: Yes (Hospitalization)
  Sender: FDA-Public Use
  Company Number: A0795847A

PATIENT
  Age: 53 Year
  Sex: Female

DRUGS (3)
  1. AVANDAMET [Suspect]
     Dates: start: 20040720, end: 20050729
  2. AVANDIA [Suspect]
  3. AVANDARYL [Suspect]

REACTIONS (2)
  - CARDIAC DISORDER [None]
  - CORONARY ARTERY DISEASE [None]
